FAERS Safety Report 7583729-6 (Version None)
Quarter: 2011Q2

REPORT INFORMATION
  Report Type: 
  Country: None (occurrence: None)
  Receive Date: 20110630
  Receipt Date: 20110623
  Transmission Date: 20111010
  Serious: Yes (Other)
  Sender: FDA-Public Use
  Company Number: B0729858A

PATIENT

DRUGS (1)
  1. LAPATINIB [Suspect]
     Route: 065

REACTIONS (3)
  - ULCER [None]
  - SKIN HYPERPIGMENTATION [None]
  - SKIN TOXICITY [None]
